FAERS Safety Report 22230101 (Version 1)
Quarter: 2023Q2

REPORT INFORMATION
  Report Type: Spontaneous
  Country: US (occurrence: US)
  Receive Date: 20230419
  Receipt Date: 20230419
  Transmission Date: 20230722
  Serious: Yes (Other)
  Sender: FDA-Public Use
  Company Number: US-BRISTOL-MYERS SQUIBB COMPANY-2023-053893

PATIENT
  Age: 79 Year
  Sex: Female
  Weight: 55.79 kg

DRUGS (23)
  1. LENALIDOMIDE [Suspect]
     Active Substance: LENALIDOMIDE
     Indication: Lymphoma
     Dosage: FREQUENCY: 21/28
     Route: 048
     Dates: start: 20230217
  2. BAYER ASPIRIN [Concomitant]
     Active Substance: ASPIRIN
     Indication: Product used for unknown indication
     Dosage: LOW DOSE
     Route: 048
     Dates: start: 20220607
  3. FISH OIL [Concomitant]
     Active Substance: FISH OIL
     Indication: Product used for unknown indication
     Route: 048
     Dates: start: 20220607
  4. HYDROXYCHLOROQUINE SULFATE [Concomitant]
     Active Substance: HYDROXYCHLOROQUINE SULFATE
     Indication: Product used for unknown indication
     Route: 048
     Dates: start: 20220519
  5. LENALIDOMIDE [Concomitant]
     Active Substance: LENALIDOMIDE
     Indication: Product used for unknown indication
     Dosage: FREQ: USE AS DIRECTED (REFILL-NO CHANGE)
     Route: 048
     Dates: start: 20221123, end: 20221220
  6. LENALIDOMIDE [Concomitant]
     Active Substance: LENALIDOMIDE
     Dosage: FREQ: USE AS DIRECTED
     Route: 048
     Dates: start: 20221220, end: 20230130
  7. LENALIDOMIDE [Concomitant]
     Active Substance: LENALIDOMIDE
     Dosage: FREQ: USE AS DIRECTED (REFILL-NO CHANGE)
     Route: 048
     Dates: start: 20230130, end: 20230220
  8. LENALIDOMIDE [Concomitant]
     Active Substance: LENALIDOMIDE
     Dosage: FREQ: USE AS DIRECTED
     Route: 048
     Dates: start: 20230220, end: 20230320
  9. LENALIDOMIDE [Concomitant]
     Active Substance: LENALIDOMIDE
     Dosage: FREQ: USE AS DIRECTED
     Route: 048
     Dates: start: 20230320, end: 20230414
  10. LENALIDOMIDE [Concomitant]
     Active Substance: LENALIDOMIDE
     Dosage: FREQ: USE AS DIRECTED (REFILL-NO CHANGES)
     Route: 048
     Dates: start: 20230414
  11. LENALIDOMIDE [Concomitant]
     Active Substance: LENALIDOMIDE
     Dosage: FREQ: USE AS DIRECTED (REFILL-NO CHANGE)
     Route: 048
     Dates: start: 20221107, end: 20221123
  12. EQUATE COMPLETE MULTIVITAMIN WOMEN 50+ [Concomitant]
     Indication: Product used for unknown indication
     Route: 048
     Dates: start: 20220607
  13. OMEPRAZOLE [Concomitant]
     Active Substance: OMEPRAZOLE
     Indication: Product used for unknown indication
     Dosage: DELAYED RELEASE
     Route: 048
     Dates: start: 20220519
  14. REVLIMID [Concomitant]
     Active Substance: LENALIDOMIDE
     Indication: Product used for unknown indication
     Dosage: USE AS DIRECTED (REFILL-NO CHANGES)
     Route: 048
     Dates: start: 20220623, end: 20220725
  15. REVLIMID [Concomitant]
     Active Substance: LENALIDOMIDE
     Dosage: USE AS DIRECTED (REFILL-NO CHANGES)
     Route: 048
     Dates: start: 20220725, end: 20220815
  16. REVLIMID [Concomitant]
     Active Substance: LENALIDOMIDE
     Dosage: USE AS DIRECTED (REFILL-NO CHANGES)
     Route: 048
     Dates: start: 20220815, end: 20220906
  17. REVLIMID [Concomitant]
     Active Substance: LENALIDOMIDE
     Dosage: USE AS DIRECTED
     Route: 048
     Dates: start: 20220906, end: 20221005
  18. REVLIMID [Concomitant]
     Active Substance: LENALIDOMIDE
     Dosage: USE AS DIRECTED (REFILL-NO CHANGES)
     Route: 048
     Dates: start: 20221005, end: 20221107
  19. REVLIMID [Concomitant]
     Active Substance: LENALIDOMIDE
     Dosage: USE AS DIRECTED
     Route: 048
     Dates: start: 20220519, end: 20220606
  20. REVLIMID [Concomitant]
     Active Substance: LENALIDOMIDE
     Dosage: DOSE: 15; USE AS DIRECTED
     Route: 048
     Dates: start: 20220606, end: 20220623
  21. SIMVASTATIN [Concomitant]
     Active Substance: SIMVASTATIN
     Indication: Product used for unknown indication
     Route: 048
     Dates: start: 20220519
  22. VITAMIN D3 [Concomitant]
     Active Substance: CHOLECALCIFEROL
     Indication: Product used for unknown indication
     Route: 048
     Dates: start: 20220607
  23. ZINC [Concomitant]
     Active Substance: ZINC
     Indication: Product used for unknown indication
     Route: 048
     Dates: start: 20220607

REACTIONS (1)
  - Pneumonia [Recovering/Resolving]
